FAERS Safety Report 6435980-6 (Version None)
Quarter: 2009Q4

REPORT INFORMATION
  Report Type: 
  Country: None (occurrence: None)
  Receive Date: 20091111
  Receipt Date: 20091104
  Transmission Date: 20100525
  Serious: Yes (Death, Life-Threatening, Hospitalization)
  Sender: FDA-Public Use
  Company Number: FI-BAYER-200938452GPV

PATIENT
  Age: 66 Year
  Sex: Female

DRUGS (6)
  1. ACETYLSALICYLIC ACID [Suspect]
     Indication: ANTIPLATELET THERAPY
  2. ACETYLSALICYLIC ACID [Suspect]
  3. ACETYLSALICYLIC ACID [Suspect]
  4. CLOPIDOGREL [Suspect]
     Indication: ANTIPLATELET THERAPY
  5. ENOXAPARIN [Suspect]
     Indication: ANTIPLATELET THERAPY
     Dosage: TOTAL DAILY DOSE: 40 MG
  6. DALTEPARIN [Suspect]
     Indication: DRUG USE FOR UNKNOWN INDICATION

REACTIONS (5)
  - CEREBELLAR HAEMATOMA [None]
  - CONVULSION [None]
  - HYDROCEPHALUS [None]
  - PARALYSIS [None]
  - SOMNOLENCE [None]
